FAERS Safety Report 5757326-9 (Version None)
Quarter: 2008Q2

REPORT INFORMATION
  Report Type: 
  Country: None (occurrence: None)
  Receive Date: 20080603
  Receipt Date: 20080527
  Transmission Date: 20081010
  Serious: Yes (Hospitalization)
  Sender: FDA-Public Use
  Company Number: US-ASTRAZENECA-2008UW10787

PATIENT
  Age: 61 Year
  Sex: Female
  Weight: 108.9 kg

DRUGS (9)
  1. SEROQUEL [Suspect]
     Indication: SCHIZOPHRENIA
     Route: 048
  2. SEROQUEL [Suspect]
     Route: 048
  3. LORAZEPAM [Concomitant]
  4. ZETIA [Concomitant]
  5. FUROSEMIDE [Concomitant]
  6. LISINOPRIL [Concomitant]
     Route: 048
  7. PROZAC [Concomitant]
  8. GLYBURIDE [Concomitant]
  9. VITAMIN B6/B12/FOLIC ACID COMBINATION [Concomitant]

REACTIONS (7)
  - ANXIETY [None]
  - BLOOD CALCIUM INCREASED [None]
  - DISORIENTATION [None]
  - DRY MOUTH [None]
  - LIVER INJURY [None]
  - MUSCULOSKELETAL STIFFNESS [None]
  - SCAR [None]
